FAERS Safety Report 9896292 (Version 1)
Quarter: 2014Q1

REPORT INFORMATION
  Report Type: Spontaneous
  Country: US (occurrence: US)
  Receive Date: 20140213
  Receipt Date: 20140213
  Transmission Date: 20141002
  Serious: No
  Sender: FDA-Public Use
  Company Number: US-BRISTOL-MYERS SQUIBB COMPANY-18820266

PATIENT
  Age: 64 Year
  Sex: Female
  Weight: 90.7 kg

DRUGS (3)
  1. ABATACEPT SUBQ INJECTION 125MG/ML [Suspect]
     Indication: PSORIATIC ARTHROPATHY
     Dosage: LAST DOSE: 20APR2013
     Route: 058
     Dates: start: 20130420
  2. DOXYCYCLINE [Concomitant]
     Indication: URINARY TRACT INFECTION
  3. WARFARIN [Concomitant]
     Indication: THROMBOSIS
     Dosage: 1 DF: 6MG ON EVEN DAYS AND 7MG ON ODD DAYS OF THE MONTH

REACTIONS (3)
  - Nausea [Recovered/Resolved]
  - Cough [Unknown]
  - Pyrexia [Not Recovered/Not Resolved]
